FAERS Safety Report 24193228 (Version 2)
Quarter: 2024Q3

REPORT INFORMATION
  Report Type: Report from Study
  Country: EG (occurrence: EG)
  Receive Date: 20240809
  Receipt Date: 20240827
  Transmission Date: 20241016
  Serious: Yes (Other)
  Sender: BIOGEN
  Company Number: EG-BIOGEN-2024BI01276935

PATIENT
  Age: 23 Year
  Sex: Female

DRUGS (2)
  1. TYSABRI [Suspect]
     Active Substance: NATALIZUMAB
     Indication: Multiple sclerosis
     Route: 050
     Dates: start: 202404
  2. REMERON [Concomitant]
     Active Substance: MIRTAZAPINE
     Indication: Depression
     Route: 050

REACTIONS (5)
  - Viral infection [Recovered/Resolved]
  - Urinary retention [Recovered/Resolved]
  - Condition aggravated [Unknown]
  - Hypochromic anaemia [Unknown]
  - Lymphocytosis [Unknown]

NARRATIVE: CASE EVENT DATE: 20240701
